FAERS Safety Report 7551077-6 (Version None)
Quarter: 2011Q2

REPORT INFORMATION
  Report Type: 
  Country: None (occurrence: None)
  Receive Date: 20110616
  Receipt Date: 20110601
  Transmission Date: 20111010
  Serious: Yes (Hospitalization)
  Sender: FDA-Public Use
  Company Number: FR-SANOFI-AVENTIS-2011SA035408

PATIENT
  Age: 54 Year
  Sex: Female

DRUGS (15)
  1. LUDIOMIL [Suspect]
     Indication: DEPRESSION
     Route: 048
     Dates: start: 20101222, end: 20110128
  2. LORMETAZEPAM [Concomitant]
     Indication: INSOMNIA
     Route: 048
     Dates: start: 20101222, end: 20110117
  3. TEGRETOL [Suspect]
     Indication: DEPRESSION
     Dosage: DOSE:2 UNIT(S)
     Route: 048
     Dates: start: 20101222, end: 20110128
  4. CLONAZEPAM [Suspect]
     Indication: INSOMNIA
     Route: 048
     Dates: end: 20110203
  5. DIHYDROERGOTAMINE MESYLATE [Concomitant]
     Dates: start: 20101118, end: 20101218
  6. ACETAMINOPHEN W/ PROPOXYPHENE HCL [Concomitant]
     Dates: start: 20101118, end: 20101218
  7. PRAZEPAM [Concomitant]
     Dates: end: 20101222
  8. TRIMETAZIDINE HYDROCHLORIDE [Concomitant]
     Dates: start: 20101118, end: 20101218
  9. PIPORTIL [Concomitant]
     Dates: start: 20101014, end: 20101215
  10. TRANXENE [Suspect]
     Indication: ANXIETY
     Route: 048
     Dates: start: 20110112, end: 20110128
  11. TANGANIL [Concomitant]
     Dates: start: 20101118, end: 20101218
  12. ZOLPIDEM [Suspect]
     Indication: INSOMNIA
     Route: 048
     Dates: end: 20110203
  13. TRANXENE [Suspect]
     Dosage: DOSE:2 UNIT(S)
     Route: 042
     Dates: start: 20101228, end: 20110121
  14. LOXAPINE HCL [Suspect]
     Route: 048
     Dates: start: 20101222, end: 20110128
  15. PAROXETINE HCL [Concomitant]
     Dates: end: 20101222

REACTIONS (4)
  - RASH GENERALISED [None]
  - OEDEMA [None]
  - PRURITUS [None]
  - EOSINOPHILIA [None]
